FAERS Safety Report 23394587 (Version 5)
Quarter: 2024Q3

REPORT INFORMATION
  Report Type: Spontaneous
  Country: CA (occurrence: CA)
  Receive Date: 20240112
  Receipt Date: 20240924
  Transmission Date: 20241017
  Serious: Yes (Hospitalization, Other)
  Sender: CELLTRION
  Company Number: CA-CELLTRION INC.-2023CA023300

PATIENT

DRUGS (5)
  1. INFLECTRA [Suspect]
     Active Substance: INFLIXIMAB-DYYB
     Indication: Rheumatoid arthritis
     Dosage: 300 MG, ONCE Q6 WEEK
     Route: 042
     Dates: start: 20201230
  2. INFLECTRA [Suspect]
     Active Substance: INFLIXIMAB-DYYB
     Indication: Ankylosing spondylitis
     Dosage: 300 MG, ONCE Q 6 WEEK
     Route: 042
     Dates: start: 20231012
  3. INFLECTRA [Suspect]
     Active Substance: INFLIXIMAB-DYYB
     Dosage: 400 MG, ONCE Q 5 WEEK
     Route: 042
  4. INFLECTRA [Suspect]
     Active Substance: INFLIXIMAB-DYYB
     Dosage: 300 MG, ONCE Q 6 WEEK
     Route: 042
  5. INFLECTRA [Suspect]
     Active Substance: INFLIXIMAB-DYYB
     Dosage: 300 MG, ONCE Q 6 WEEK
     Route: 042
     Dates: start: 20240626

REACTIONS (4)
  - Weight decreased [Unknown]
  - Glaucoma [Unknown]
  - Grief reaction [Unknown]
  - Depression [Unknown]
